FAERS Safety Report 13004195 (Version 2)
Quarter: 2020Q1

REPORT INFORMATION
  Report Type: Spontaneous
  Country: US (occurrence: US)
  Receive Date: 20161206
  Receipt Date: 20200320
  Transmission Date: 20200409
  Serious: Yes (Death, Hospitalization, Other)
  Sender: FDA-Public Use
  Company Number: US-ASTRAZENECA-2016SF27326

PATIENT
  Age: 20573 Day
  Sex: Male
  Weight: 109.3 kg

DRUGS (48)
  1. CYCLOSET [Concomitant]
     Active Substance: BROMOCRIPTINE MESYLATE
     Route: 048
     Dates: start: 20150202
  2. CLINDAMYCIN. [Concomitant]
     Active Substance: CLINDAMYCIN
     Route: 048
     Dates: start: 20140702
  3. TIZANIDINE. [Concomitant]
     Active Substance: TIZANIDINE
     Route: 048
     Dates: start: 20150424
  4. TOBREX [Concomitant]
     Active Substance: TOBRAMYCIN
     Route: 065
     Dates: start: 20070813
  5. NABUMETONE. [Concomitant]
     Active Substance: NABUMETONE
     Route: 048
     Dates: start: 20080821
  6. LORAZEPAM. [Concomitant]
     Active Substance: LORAZEPAM
     Route: 065
     Dates: start: 20150202
  7. BYETTA [Suspect]
     Active Substance: EXENATIDE
     Dosage: 5 MCG, EVERY 12 HOURS
     Route: 065
     Dates: start: 20071121, end: 200801
  8. VICTOZA [Suspect]
     Active Substance: LIRAGLUTIDE
     Dosage: 0.6 MG TITRATED UP TO 1.8 MG OVER 4 WEEKS
     Route: 065
     Dates: start: 20120202, end: 201203
  9. AVANDAMET [Concomitant]
     Active Substance: METFORMIN HYDROCHLORIDE\ROSIGLITAZONE MALEATE
     Route: 048
     Dates: start: 20061022
  10. ACTOS [Concomitant]
     Active Substance: PIOGLITAZONE HYDROCHLORIDE
     Route: 048
     Dates: start: 20090109
  11. ONGLYZA [Concomitant]
     Active Substance: SAXAGLIPTIN HYDROCHLORIDE
     Route: 048
     Dates: start: 20100426
  12. AMARYL [Concomitant]
     Active Substance: GLIMEPIRIDE
     Route: 048
     Dates: start: 20100328
  13. NAPROXEN. [Concomitant]
     Active Substance: NAPROXEN
     Route: 048
     Dates: start: 20140621
  14. KLOR-CON [Concomitant]
     Active Substance: POTASSIUM CHLORIDE
     Route: 048
     Dates: start: 20150812
  15. ONDANSETRON [Concomitant]
     Active Substance: ONDANSETRON
     Route: 048
     Dates: start: 20150904
  16. TRICOR [Concomitant]
     Active Substance: FENOFIBRATE
     Route: 048
     Dates: start: 20080301
  17. GLIPIZIDE. [Concomitant]
     Active Substance: GLIPIZIDE
     Route: 048
     Dates: start: 20061022
  18. PROTONIX [Concomitant]
     Active Substance: PANTOPRAZOLE SODIUM
     Route: 048
     Dates: start: 20150202
  19. MELOXICAM. [Concomitant]
     Active Substance: MELOXICAM
     Route: 048
     Dates: start: 20101019
  20. AZITHROMYCIN ANHYDROUS. [Concomitant]
     Active Substance: AZITHROMYCIN ANHYDROUS
     Route: 048
     Dates: start: 20121123
  21. TEMAZEPAM. [Concomitant]
     Active Substance: TEMAZEPAM
     Route: 048
     Dates: start: 20150524
  22. SPIRONOLACTONE. [Concomitant]
     Active Substance: SPIRONOLACTONE
     Route: 048
     Dates: start: 20150812
  23. PRAVACHOL [Concomitant]
     Active Substance: PRAVASTATIN SODIUM
     Route: 048
     Dates: start: 20150202
  24. SODIUM CHLORIDE. [Concomitant]
     Active Substance: SODIUM CHLORIDE
     Route: 065
  25. HYDROCHLOROTHIAZIDE. [Concomitant]
     Active Substance: HYDROCHLOROTHIAZIDE
     Route: 048
     Dates: start: 20101110
  26. LEVEMIR [Concomitant]
     Active Substance: INSULIN DETEMIR
     Route: 065
     Dates: start: 20150724
  27. HYDRALAZINE [Concomitant]
     Active Substance: HYDRALAZINE HYDROCHLORIDE
     Route: 065
     Dates: start: 20150203
  28. VICTOZA [Suspect]
     Active Substance: LIRAGLUTIDE
     Route: 065
     Dates: start: 201202, end: 201407
  29. VICTOZA [Suspect]
     Active Substance: LIRAGLUTIDE
     Dosage: ONCE DAILY
     Route: 065
     Dates: start: 20120202, end: 201407
  30. MUPIROCIN. [Concomitant]
     Active Substance: MUPIROCIN
     Route: 061
  31. HYDROCODONE/ACETAMINOPHEN [Concomitant]
     Active Substance: ACETAMINOPHEN\HYDROCODONE
     Dosage: 500.0MG EVERY 4 - 6 HOURS
     Route: 048
     Dates: start: 20111123
  32. BENZONATATE. [Concomitant]
     Active Substance: BENZONATATE
     Route: 048
     Dates: start: 20080229
  33. ENOXAPARIN [Concomitant]
     Active Substance: ENOXAPARIN
     Route: 065
     Dates: start: 20150204
  34. LABETALOL [Concomitant]
     Active Substance: LABETALOL\LABETALOL HYDROCHLORIDE
     Route: 065
     Dates: start: 20150203
  35. BYETTA [Suspect]
     Active Substance: EXENATIDE
     Route: 065
     Dates: start: 200711, end: 200801
  36. LISINOPRIL. [Concomitant]
     Active Substance: LISINOPRIL
     Route: 048
     Dates: start: 20100328
  37. INVOKANA [Concomitant]
     Active Substance: CANAGLIFLOZIN
     Route: 048
     Dates: start: 20140504
  38. CEPHALEXIN. [Concomitant]
     Active Substance: CEPHALEXIN
     Route: 048
     Dates: start: 20140115
  39. CHLORHEX [Concomitant]
     Active Substance: CHLORHEXIDINE GLUCONATE
     Route: 065
     Dates: start: 20140702
  40. XARELTO [Concomitant]
     Active Substance: RIVAROXABAN
     Route: 048
     Dates: start: 20150423
  41. BYSTOLIC [Concomitant]
     Active Substance: NEBIVOLOL HYDROCHLORIDE
     Route: 048
     Dates: start: 20150722
  42. VICTOZA [Suspect]
     Active Substance: LIRAGLUTIDE
     Route: 065
     Dates: start: 20120302, end: 201407
  43. VICTOZA [Suspect]
     Active Substance: LIRAGLUTIDE
     Route: 058
     Dates: start: 20120228
  44. LEVOTHYROXINE. [Concomitant]
     Active Substance: LEVOTHYROXINE
     Dosage: 175 MCG
     Route: 048
     Dates: start: 20150202
  45. BENICAR [Concomitant]
     Active Substance: OLMESARTAN MEDOXOMIL
     Route: 048
     Dates: start: 20111222
  46. AMITIZA [Concomitant]
     Active Substance: LUBIPROSTONE
     Route: 065
     Dates: start: 20150519
  47. CLOBETASOL [Concomitant]
     Active Substance: CLOBETASOL
     Route: 065
     Dates: start: 20150818
  48. LEVITRA [Concomitant]
     Active Substance: VARDENAFIL HYDROCHLORIDE
     Route: 048
     Dates: start: 20080807

REACTIONS (2)
  - Adenocarcinoma pancreas [Unknown]
  - Pancreatic carcinoma metastatic [Fatal]

NARRATIVE: CASE EVENT DATE: 20150130
